FAERS Safety Report 8795164 (Version 2)
Quarter: 2015Q2

REPORT INFORMATION
  Report Type: Report from Study
  Country: US (occurrence: US)
  Receive Date: 20120917
  Receipt Date: 20150624
  Transmission Date: 20150821
  Serious: Yes (Death)
  Sender: FDA-Public Use
  Company Number: US-ROCHE-1129425

PATIENT
  Sex: Male
  Weight: 73.86 kg

DRUGS (2)
  1. AVASTIN [Suspect]
     Active Substance: BEVACIZUMAB
     Indication: MALIGNANT RESPIRATORY TRACT NEOPLASM
     Route: 042
  2. TAXOTERE [Concomitant]
     Active Substance: DOCETAXEL
     Route: 042

REACTIONS (2)
  - Off label use [Unknown]
  - Death [Fatal]
